FAERS Safety Report 14783213 (Version 1)
Quarter: 2018Q2

REPORT INFORMATION
  Report Type: Spontaneous
  Country: US (occurrence: US)
  Receive Date: 20180420
  Receipt Date: 20180420
  Transmission Date: 20180711
  Serious: Yes (Hospitalization)
  Sender: FDA-Public Use
  Company Number: US-ARALEZ PHARMACEUTICALS R+D INC.-2018-ARA-000932

PATIENT
  Sex: Male
  Weight: 97.05 kg

DRUGS (3)
  1. ASPIRIN                            /00002701/ [Concomitant]
     Active Substance: ASPIRIN
     Indication: PRODUCT USED FOR UNKNOWN INDICATION
  2. PLAVIX [Concomitant]
     Active Substance: CLOPIDOGREL BISULFATE
     Indication: PRODUCT USED FOR UNKNOWN INDICATION
  3. ZONTIVITY [Suspect]
     Active Substance: VORAPAXAR SULFATE
     Indication: MYOCARDIAL INFARCTION
     Dosage: 2.08 MG, QD
     Route: 065

REACTIONS (1)
  - Cerebrovascular accident [Unknown]
